FAERS Safety Report 7773816-1 (Version None)
Quarter: 2011Q3

REPORT INFORMATION
  Report Type: 
  Country: None (occurrence: None)
  Receive Date: 20110920
  Receipt Date: 20110913
  Transmission Date: 20111222
  Serious: Yes (Other)
  Sender: FDA-Public Use
  Company Number: 2011SP043171

PATIENT
  Age: 83 Year
  Sex: Male

DRUGS (14)
  1. PLAVIX [Suspect]
     Indication: PRODUCT USED FOR UNKNOWN INDICATION
     Dosage: 75 MG;QD
  2. PRADIF [Concomitant]
  3. ACETAMINOPHEN [Concomitant]
  4. FOLVIT [Concomitant]
  5. REMERON [Suspect]
     Indication: PRODUCT USED FOR UNKNOWN INDICATION
     Dosage: 15 MG;QD;PO
     Route: 048
  6. PRAVASTATIN [Concomitant]
  7. ENOXAPARIN SODIUM [Suspect]
     Dosage: 40 MG;QD;SC
     Route: 058
     Dates: start: 20110530, end: 20110621
  8. AUGMENTIN '125' [Concomitant]
  9. TORSEMIDE [Concomitant]
  10. LEVOFLOXACIN [Concomitant]
  11. EPRIL [Concomitant]
  12. NITRODERM [Concomitant]
  13. METOPROLOL SUCCINATE [Concomitant]
  14. HALDOL [Concomitant]

REACTIONS (4)
  - SUDDEN DEATH [None]
  - PURPURA [None]
  - HAEMORRHAGE INTRACRANIAL [None]
  - LEUKOCYTOCLASTIC VASCULITIS [None]
